FAERS Safety Report 7029750-8 (Version None)
Quarter: 2010Q4

REPORT INFORMATION
  Report Type: 
  Country: None (occurrence: None)
  Receive Date: 20101005
  Receipt Date: 20101005
  Transmission Date: 20110411
  Serious: Yes (Life-Threatening)
  Sender: FDA-Public Use
  Company Number: None

PATIENT
  Sex: Male
  Weight: 80.7403 kg

DRUGS (1)
  1. ERBITUX [Suspect]
     Indication: RECTAL CANCER
     Dosage: 800 MG IN 400 ML SOLN 1 X IV
     Route: 042
     Dates: start: 20100713, end: 20100713

REACTIONS (5)
  - ANAPHYLACTIC SHOCK [None]
  - ANXIETY [None]
  - CONVULSION [None]
  - HYPERSENSITIVITY [None]
  - INFUSION RELATED REACTION [None]
